FAERS Safety Report 6446967-1 (Version None)
Quarter: 2009Q4

REPORT INFORMATION
  Report Type: 
  Country: None (occurrence: None)
  Receive Date: 20091119
  Receipt Date: 20091112
  Transmission Date: 20100525
  Serious: Yes (Other)
  Sender: FDA-Public Use
  Company Number: US-WYE-H11081409

PATIENT
  Sex: Male
  Weight: 15.7 kg

DRUGS (1)
  1. XYNTHA [Suspect]
     Indication: FACTOR VIII DEFICIENCY
     Dosage: DOSE 250 UNITS, INITIALLY GIVEN ON DEMAND THEN CHANGED TO PROPHYLACTIC
     Route: 042
     Dates: start: 20080725, end: 20090501

REACTIONS (4)
  - FACTOR VIII INHIBITION [None]
  - FLUSHING [None]
  - PYREXIA [None]
  - SOMNOLENCE [None]
